FAERS Safety Report 13412764 (Version 2)
Quarter: 2017Q4

REPORT INFORMATION
  Report Type: Spontaneous
  Country: US (occurrence: US)
  Receive Date: 20170406
  Receipt Date: 20171123
  Transmission Date: 20180320
  Serious: No
  Sender: FDA-Public Use
  Company Number: US-JNJFOC-20170310811

PATIENT
  Age: 14 Year
  Sex: Male

DRUGS (6)
  1. RISPERDAL [Suspect]
     Active Substance: RISPERIDONE
     Indication: COGNITIVE DISORDER
     Route: 048
     Dates: start: 20070209, end: 20080707
  2. RISPERDAL [Suspect]
     Active Substance: RISPERIDONE
     Indication: EPILEPSY
     Route: 048
     Dates: end: 20140129
  3. RISPERIDONE. [Suspect]
     Active Substance: RISPERIDONE
     Indication: EPILEPSY
     Dosage: VARYING DOSAGE OF 1MG AND 3MG
     Route: 048
     Dates: start: 20070209, end: 20170109
  4. RISPERDAL [Suspect]
     Active Substance: RISPERIDONE
     Indication: COGNITIVE DISORDER
     Route: 048
     Dates: end: 20140129
  5. RISPERDAL [Suspect]
     Active Substance: RISPERIDONE
     Indication: EPILEPSY
     Route: 048
     Dates: start: 20070209, end: 20080707
  6. RISPERIDONE. [Suspect]
     Active Substance: RISPERIDONE
     Indication: COGNITIVE DISORDER
     Dosage: VARYING DOSAGE OF 1MG AND 3MG
     Route: 048
     Dates: start: 20070209, end: 20170109

REACTIONS (4)
  - Emotional disorder [Unknown]
  - Gynaecomastia [Unknown]
  - Off label use [Unknown]
  - Product use in unapproved indication [Unknown]

NARRATIVE: CASE EVENT DATE: 20070209
